FAERS Safety Report 16008140 (Version 3)
Quarter: 2019Q2

REPORT INFORMATION
  Report Type: Spontaneous
  Country: VE (occurrence: VE)
  Receive Date: 20190226
  Receipt Date: 20190428
  Transmission Date: 20190711
  Serious: Yes (Death, Hospitalization, Other)
  Sender: FDA-Public Use
  Company Number: PHHY2018VE198892

PATIENT
  Age: 58 Year
  Sex: Male
  Weight: 39 kg

DRUGS (1)
  1. GLIVEC [Suspect]
     Active Substance: IMATINIB MESYLATE
     Indication: CHRONIC MYELOID LEUKAEMIA
     Dosage: 400 MG,QD  (4 TABLETS OF 100 MG)
     Route: 065

REACTIONS (17)
  - Renal disorder [Not Recovered/Not Resolved]
  - Abdominal pain [Unknown]
  - Malaise [Unknown]
  - Diarrhoea [Unknown]
  - Peripheral swelling [Unknown]
  - Weight decreased [Unknown]
  - Gastrointestinal disorder [Unknown]
  - Gastrointestinal neoplasm [Unknown]
  - Ascites [Unknown]
  - Chills [Unknown]
  - Decreased appetite [Not Recovered/Not Resolved]
  - Death [Fatal]
  - Vomiting [Unknown]
  - Syncope [Unknown]
  - Haemoglobin decreased [Unknown]
  - Abdominal pain upper [Unknown]
  - Nausea [Unknown]

NARRATIVE: CASE EVENT DATE: 201812
